FAERS Safety Report 5680168-X (Version None)
Quarter: 2008Q1

REPORT INFORMATION
  Report Type: 
  Country: None (occurrence: None)
  Receive Date: 20080326
  Receipt Date: 20080313
  Transmission Date: 20080703
  Serious: Yes (Hospitalization)
  Sender: FDA-Public Use
  Company Number: FR-ELI_LILLY_AND_COMPANY-FR200802003182

PATIENT
  Sex: Female
  Weight: 58 kg

DRUGS (6)
  1. FORTEO [Suspect]
     Indication: OSTEOPOROSIS
     Dosage: 20 UG, DAILY (1/D)
     Route: 058
     Dates: start: 20061201, end: 20070601
  2. DEROXAT [Concomitant]
     Indication: DEPRESSION
     Dosage: 20 MG, DAILY (1/D)
     Route: 048
     Dates: start: 20030401
  3. SERESTA [Concomitant]
     Indication: ANXIETY
     Dosage: 10 MG, DAILY (1/D)
     Route: 048
     Dates: start: 20020301
  4. PULMICORT [Concomitant]
     Indication: ASTHMA
     Dosage: UNK, AS NEEDED
     Route: 055
     Dates: start: 20030301
  5. TARDYFERON [Concomitant]
  6. CACIT VITAMINE D3 [Concomitant]

REACTIONS (2)
  - AUTOIMMUNE THYROIDITIS [None]
  - DIABETES MELLITUS [None]
